FAERS Safety Report 15562950 (Version 2)
Quarter: 2019Q1

REPORT INFORMATION
  Report Type: Spontaneous
  Country: FR (occurrence: FR)
  Receive Date: 20181029
  Receipt Date: 20190103
  Transmission Date: 20190417
  Serious: Yes (Other)
  Sender: FDA-Public Use
  Company Number: FR-009507513-1810FRA010311

PATIENT
  Sex: Female
  Weight: 74 kg

DRUGS (8)
  1. ZEPATIER [Suspect]
     Active Substance: ELBASVIR\GRAZOPREVIR
     Indication: HEPATITIS C
     Dosage: 1 TABLET DAILY DURING 12 WEEKS
     Route: 048
     Dates: start: 20170216, end: 20170511
  2. COAPROVEL [Concomitant]
     Active Substance: HYDROCHLOROTHIAZIDE\IRBESARTAN
     Indication: HYPERTENSION
     Dosage: UNK
  3. AERIUS (EBASTINE) [Concomitant]
     Active Substance: EBASTINE
     Dosage: UNK
  4. VENTOLINE (ALBUTEROL SULFATE) [Concomitant]
     Active Substance: ALBUTEROL SULFATE
     Indication: ASTHMA
     Dosage: UNK
  5. FORADIL [Concomitant]
     Active Substance: FORMOTEROL FUMARATE
     Indication: ASTHMA
     Dosage: UNK
  6. MIFLONIL [Concomitant]
     Active Substance: BUDESONIDE
     Dosage: UNK
  7. BREXIN (CHLORPHENIRAMINE MALEATE (+) PSEUDOEPHEDRINE HYDROCHLORIDE) [Concomitant]
     Dosage: UNK
  8. NARAMIG [Concomitant]
     Active Substance: NARATRIPTAN HYDROCHLORIDE
     Indication: MIGRAINE
     Dosage: UNK

REACTIONS (1)
  - Hepatitis C [Unknown]
